FAERS Safety Report 6367498-3 (Version None)
Quarter: 2009Q3

REPORT INFORMATION
  Report Type: 
  Country: None (occurrence: None)
  Receive Date: 20090921
  Receipt Date: 20090907
  Transmission Date: 20100115
  Serious: Yes (Death)
  Sender: FDA-Public Use
  Company Number: PL-GENENTECH-290490

PATIENT
  Age: 9 Year
  Sex: Male

DRUGS (1)
  1. MABTHERA [Suspect]
     Indication: DRUG USE FOR UNKNOWN INDICATION
     Dosage: 375 MG/M2, UNK
     Route: 065

REACTIONS (5)
  - APLASIA [None]
  - GENERAL PHYSICAL HEALTH DETERIORATION [None]
  - HEPATIC FAILURE [None]
  - PULMONARY OEDEMA [None]
  - VENOOCCLUSIVE DISEASE [None]
